FAERS Safety Report 5398772-5 (Version None)
Quarter: 2007Q3

REPORT INFORMATION
  Report Type: 
  Country: None (occurrence: None)
  Receive Date: 20070724
  Receipt Date: 20070717
  Transmission Date: 20080115
  Serious: Yes (Other)
  Sender: FDA-Public Use
  Company Number: OSCN-PR-0707S-0296

PATIENT
  Age: 24 Year
  Sex: Female

DRUGS (1)
  1. OMNISCAN [Suspect]
     Indication: COMPLICATIONS OF TRANSPLANTED KIDNEY
     Dosage: 50 ML, SINGLE DOSE, I.V.
     Route: 042
     Dates: start: 20070509, end: 20070509

REACTIONS (1)
  - NEPHROGENIC SYSTEMIC FIBROSIS [None]
